FAERS Safety Report 5450931-9 (Version None)
Quarter: 2007Q3

REPORT INFORMATION
  Report Type: 
  Country: None (occurrence: None)
  Receive Date: 20070911
  Receipt Date: 20070828
  Transmission Date: 20080115
  Serious: Yes (Other)
  Sender: FDA-Public Use
  Company Number: 235241K07USA

PATIENT
  Age: 60 Year
  Sex: Female
  Weight: 62.5964 kg

DRUGS (9)
  1. REBIF [Suspect]
     Indication: MULTIPLE SCLEROSIS
     Dosage: 44 MCG, 3 IN 1 WEEKS,  SUBCUTANEOUS
     Route: 058
     Dates: start: 20050807
  2. NADOLOL [Concomitant]
  3. HYDRALAZINE HCL [Concomitant]
  4. CLONAZEPAM [Concomitant]
  5. METFORMIN HCL [Concomitant]
  6. AMILORIDE (AMILORIDE) [Concomitant]
  7. LEXAPRO [Concomitant]
  8. WELLBUTRIN [Concomitant]
  9. ASPIRIN [Concomitant]

REACTIONS (13)
  - BACTERIAL INFECTION [None]
  - EYE HAEMORRHAGE [None]
  - FUNGAL INFECTION [None]
  - HEADACHE [None]
  - INFECTION [None]
  - LUNG NEOPLASM MALIGNANT [None]
  - NERVOUS SYSTEM DISORDER [None]
  - OPTIC NERVE DISORDER [None]
  - OSTEOMYELITIS [None]
  - PNEUMONIA [None]
  - SINUS POLYP [None]
  - SINUSITIS [None]
  - VOCAL CORD NEOPLASM [None]
